FAERS Safety Report 17233691 (Version 1)
Quarter: 2020Q1

REPORT INFORMATION
  Report Type: Spontaneous
  Country: NL (occurrence: NL)
  Receive Date: 20200105
  Receipt Date: 20200105
  Transmission Date: 20200409
  Serious: Yes (Hospitalization)
  Sender: FDA-Public Use
  Company Number: NL-TEVA-2019-NL-1162104

PATIENT
  Age: 75 Year
  Sex: Female

DRUGS (3)
  1. CARBAMAZEPINE TABLET, 100 MG (MILLIGRAM) [Suspect]
     Active Substance: CARBAMAZEPINE
     Indication: TRIGEMINAL NEURALGIA
     Dosage: 200 MILLIGRAM DAILY; 100 MG
     Dates: start: 20191202, end: 20191204
  2. PLANTAGO OVATA POEDER 3,4G [Concomitant]
     Dosage: 1DF
  3. TACROLIMUS ZALF [Concomitant]
     Dosage: TWICE DAILY IF NECESSARY, BRIEFLY

REACTIONS (1)
  - Ileus [Recovered/Resolved]

NARRATIVE: CASE EVENT DATE: 20191202
